FAERS Safety Report 7391936-0 (Version None)
Quarter: 2011Q2

REPORT INFORMATION
  Report Type: 
  Country: None (occurrence: None)
  Receive Date: 20110404
  Receipt Date: 20110324
  Transmission Date: 20111010
  Serious: Yes (Other)
  Sender: FDA-Public Use
  Company Number: US-BRACCO-005603

PATIENT
  Sex: Male
  Weight: 79.36 kg

DRUGS (33)
  1. CARDURA [Concomitant]
  2. OMNISCAN [Suspect]
     Indication: NUCLEAR MAGNETIC RESONANCE IMAGING
     Route: 042
     Dates: start: 20060112, end: 20060112
  3. ASPIRIN [Concomitant]
  4. LEVOTHYROXINE [Concomitant]
  5. WARFARIN SODIUM [Concomitant]
  6. CLONIDINE [Concomitant]
  7. LOTENSIN [Concomitant]
  8. OMNISCAN [Suspect]
     Indication: RENAL FAILURE
     Route: 042
     Dates: start: 20060112, end: 20060112
  9. SEVELAMER [Concomitant]
  10. PROGRAF [Concomitant]
  11. MULTIHANCE [Suspect]
     Indication: NUCLEAR MAGNETIC RESONANCE IMAGING
     Route: 042
     Dates: start: 20071030, end: 20071030
  12. MAGNEVIST [Suspect]
     Indication: PANCREATITIS
     Route: 042
     Dates: start: 20060206, end: 20060206
  13. OPTIMARK [Suspect]
     Indication: TRANSPLANT EVALUATION
     Route: 042
     Dates: start: 20060525, end: 20060525
  14. VISIPAQUE [Concomitant]
     Indication: ANGIOGRAM
     Dates: start: 20070220
  15. VALSARTAN [Concomitant]
  16. PHOSLO [Concomitant]
  17. MAGNEVIST [Suspect]
     Indication: ABDOMINAL PAIN
     Route: 042
     Dates: start: 20060206, end: 20060206
  18. OPTIMARK [Suspect]
     Indication: NUCLEAR MAGNETIC RESONANCE IMAGING
     Route: 042
     Dates: start: 20060525, end: 20060525
  19. OMNISCAN [Suspect]
     Indication: MAGNETIC RESONANCE CHOLANGIOPANCREATOGRAPHY
     Route: 042
     Dates: start: 20060112, end: 20060112
  20. PLAVIX [Concomitant]
  21. FERROUS SULFATE TAB [Concomitant]
  22. NEPHROCAPS [Concomitant]
  23. CYTOXAN [Concomitant]
  24. VISIPAQUE [Concomitant]
     Indication: STENT PLACEMENT
     Dates: start: 20070220
  25. METOPROLOL SUCCINATE [Concomitant]
  26. NORVASC [Concomitant]
  27. OPTIMARK [Suspect]
     Indication: VENOUS THROMBOSIS
     Route: 042
     Dates: start: 20060525, end: 20060525
  28. VISIPAQUE [Concomitant]
     Indication: CATHETERISATION CARDIAC
     Dates: start: 20060731
  29. PREDNISONE [Concomitant]
  30. MAGNEVIST [Suspect]
     Indication: NUCLEAR MAGNETIC RESONANCE IMAGING
     Route: 042
     Dates: start: 20060206, end: 20060206
  31. OMNISCAN [Suspect]
     Indication: PANCREATITIS
     Route: 042
     Dates: start: 20060112, end: 20060112
  32. EPOGEN [Concomitant]
  33. MULTIHANCE [Suspect]
     Indication: ANGIOGRAM
     Route: 042
     Dates: start: 20071030, end: 20071030

REACTIONS (1)
  - NEPHROGENIC SYSTEMIC FIBROSIS [None]
